FAERS Safety Report 15318123 (Version 1)
Quarter: 2018Q3

REPORT INFORMATION
  Report Type: Spontaneous
  Country: US (occurrence: US)
  Receive Date: 20180825
  Receipt Date: 20180825
  Transmission Date: 20181010
  Serious: No
  Sender: FDA-Public Use
  Company Number: US-ELI_LILLY_AND_COMPANY-US201808009492

PATIENT
  Age: 31 Year
  Sex: Female

DRUGS (1)
  1. ABEMACICLIB 200MG [Suspect]
     Active Substance: ABEMACICLIB
     Indication: BREAST CANCER FEMALE
     Dosage: 200 MG, UNKNOWN (TWICE DAILY FOR 28 DAYS)
     Route: 065
     Dates: start: 20180808

REACTIONS (1)
  - Aphonia [Unknown]

NARRATIVE: CASE EVENT DATE: 20180812
